FAERS Safety Report 22287926 (Version 2)
Quarter: 2023Q2

REPORT INFORMATION
  Report Type: Spontaneous
  Country: PT (occurrence: PT)
  Receive Date: 20230505
  Receipt Date: 20230607
  Transmission Date: 20230722
  Serious: Yes (Hospitalization)
  Sender: FDA-Public Use
  Company Number: None

PATIENT
  Age: 70 Year
  Sex: Male

DRUGS (6)
  1. CISPLATIN [Suspect]
     Active Substance: CISPLATIN
     Indication: Cholangiocarcinoma
     Dosage: 38.25 MG EVERY 21 DAYS, STRENGTH: 1
     Dates: start: 20230405
  2. DURVALUMAB [Suspect]
     Active Substance: DURVALUMAB
     Indication: Cholangiocarcinoma
     Dosage: STRENGTH: 50, 1500 MG EVERY 21 DAYS
     Dates: start: 20230405
  3. GEMCITABINE [Suspect]
     Active Substance: GEMCITABINE
     Indication: Cholangiocarcinoma
     Dosage: STRENGTH: 40, 1530 MG EVERY 21 DAYS
     Dates: start: 20230302, end: 20230330
  4. DURVALUMAB [Suspect]
     Active Substance: DURVALUMAB
     Indication: Cholangiocarcinoma
     Dosage: STRENGTH: 50, 1500 MG EVERY 21 DAYS
     Dates: start: 20230302, end: 20230330
  5. GEMCITABINE [Suspect]
     Active Substance: GEMCITABINE
     Indication: Cholangiocarcinoma
     Dosage: STRENGTH: 40, 1530 MG EVERY 21 DAYS
     Dates: start: 20230405
  6. CISPLATIN [Suspect]
     Active Substance: CISPLATIN
     Indication: Cholangiocarcinoma
     Dosage: 38.25 MG EVERY 21 DAYS, STRENGTH: 1
     Dates: start: 20230302, end: 20230330

REACTIONS (1)
  - Anaemia [Not Recovered/Not Resolved]

NARRATIVE: CASE EVENT DATE: 20230330
